FAERS Safety Report 7026161-6 (Version None)
Quarter: 2010Q4

REPORT INFORMATION
  Report Type: 
  Country: None (occurrence: None)
  Receive Date: 20101004
  Receipt Date: 20100929
  Transmission Date: 20110411
  Serious: No
  Sender: FDA-Public Use
  Company Number: US-BIOGENIDEC-2010BI033742

PATIENT
  Age: 41 Year
  Sex: Female

DRUGS (4)
  1. AVONEX [Suspect]
     Indication: MULTIPLE SCLEROSIS
     Route: 030
     Dates: start: 20100907
  2. BACLOFEN [Concomitant]
     Indication: HEMIPARESIS
     Route: 048
     Dates: start: 20100701
  3. BACLOFEN [Concomitant]
     Route: 048
     Dates: start: 20100901
  4. 4AP [Concomitant]
     Indication: NERVE INJURY
     Route: 048
     Dates: start: 20100801

REACTIONS (2)
  - HEMIPARESIS [None]
  - INFLUENZA LIKE ILLNESS [None]
